FAERS Safety Report 6375979-1 (Version None)
Quarter: 2009Q3

REPORT INFORMATION
  Report Type: 
  Country: None (occurrence: None)
  Receive Date: 20090921
  Receipt Date: 20090908
  Transmission Date: 20100115
  Serious: Yes (Other)
  Sender: FDA-Public Use
  Company Number: 2009AL005977

PATIENT
  Age: 71 Year
  Sex: Male

DRUGS (3)
  1. IRINOTECAN HCL [Suspect]
  2. CALCIUM FOLINATE [Concomitant]
  3. FLUOROURACIL [Concomitant]

REACTIONS (1)
  - CATHETER RELATED INFECTION [None]
